FAERS Safety Report 21020179 (Version 14)
Quarter: 2022Q4

REPORT INFORMATION
  Report Type: Report from Study
  Country: US (occurrence: US)
  Receive Date: 20220628
  Receipt Date: 20221223
  Transmission Date: 20230113
  Serious: Yes (Hospitalization, Other)
  Sender: FDA-Public Use
  Company Number: US-GILEAD-2022-0587153

PATIENT
  Age: 56 Year
  Sex: Female
  Weight: 112 kg

DRUGS (29)
  1. SACITUZUMAB GOVITECAN [Suspect]
     Active Substance: SACITUZUMAB GOVITECAN
     Indication: Triple negative breast cancer
     Dosage: 10 MG/KG (1148 MG) ON DAYS 1 AND 8 OF EACH 21-DAY CYCLE
     Route: 042
     Dates: start: 20220531
  2. SACITUZUMAB GOVITECAN [Suspect]
     Active Substance: SACITUZUMAB GOVITECAN
     Dosage: 5 MG/KG
     Route: 042
  3. SACITUZUMAB GOVITECAN [Suspect]
     Active Substance: SACITUZUMAB GOVITECAN
     Dosage: 868.5 MG
     Route: 043
     Dates: start: 20220607, end: 20220607
  4. SACITUZUMAB GOVITECAN [Suspect]
     Active Substance: SACITUZUMAB GOVITECAN
     Dosage: 575
     Route: 042
     Dates: start: 20220622, end: 20220622
  5. SACITUZUMAB GOVITECAN [Suspect]
     Active Substance: SACITUZUMAB GOVITECAN
     Dosage: C3D1
     Route: 042
     Dates: start: 20220713
  6. ATEZOLIZUMAB [Suspect]
     Active Substance: ATEZOLIZUMAB
     Indication: Triple negative breast cancer
     Dosage: 1200 MG, Q3WK
     Route: 042
     Dates: start: 20220531
  7. ALPRAZOLAM [Concomitant]
     Active Substance: ALPRAZOLAM
     Indication: Anxiety
     Dosage: UNK
     Dates: start: 20180919
  8. CYCLOBENZAPRINE [Concomitant]
     Active Substance: CYCLOBENZAPRINE
     Indication: Pleuritic pain
     Dosage: UNK
     Dates: start: 20210528, end: 20220823
  9. METOPROLOL [Concomitant]
     Active Substance: METOPROLOL
     Indication: Cardiomyopathy
     Dosage: UNK
     Dates: start: 201812
  10. PANTOPRAZOLE [Concomitant]
     Active Substance: PANTOPRAZOLE
     Indication: Gastrooesophageal reflux disease
     Dosage: UNK
     Dates: start: 2018
  11. LISINOPRIL [Concomitant]
     Active Substance: LISINOPRIL
     Indication: Cardiomyopathy
     Dosage: UNK
     Dates: start: 201812, end: 20220701
  12. LISINOPRIL [Concomitant]
     Active Substance: LISINOPRIL
     Dosage: UNK
     Dates: start: 20220702, end: 20220903
  13. ACETAMINOPHEN [Concomitant]
     Active Substance: ACETAMINOPHEN
  14. FAMOTIDINE [Concomitant]
     Active Substance: FAMOTIDINE
  15. BENADRYL [Concomitant]
     Active Substance: DIPHENHYDRAMINE HYDROCHLORIDE
     Indication: Rash
     Dosage: UNK
     Dates: start: 20220603, end: 20220621
  16. DECADRON [Concomitant]
     Active Substance: DEXAMETHASONE
  17. TAXOTERE [Concomitant]
     Active Substance: DOCETAXEL
  18. AKYNZEO (NETUPITANT\PALONOSETRON) [Concomitant]
     Active Substance: NETUPITANT\PALONOSETRON
  19. CYTOXAN [Concomitant]
     Active Substance: CYCLOPHOSPHAMIDE
  20. DOXIL [Concomitant]
     Active Substance: DOXORUBICIN HYDROCHLORIDE
  21. SODIUM CHLORIDE [Concomitant]
     Active Substance: SODIUM CHLORIDE
     Dosage: UNK
     Dates: start: 20220616, end: 20220618
  22. SUPER C [ASCORBIC ACID] [Concomitant]
  23. NEULASTA [Concomitant]
     Active Substance: PEGFILGRASTIM
     Dosage: UNK
     Dates: start: 20220607
  24. TYLENOL [Concomitant]
     Active Substance: ACETAMINOPHEN
     Indication: Pyrexia
     Dosage: 500 MG, QD
     Dates: start: 20220718
  25. ATROPINE [Concomitant]
     Active Substance: ATROPINE
  26. DIPHENOXYLATE [Concomitant]
     Active Substance: DIPHENOXYLATE
  27. PRILOCAINE [Concomitant]
     Active Substance: PRILOCAINE
  28. LIDOCAINE [Concomitant]
     Active Substance: LIDOCAINE
  29. XANAX [Concomitant]
     Active Substance: ALPRAZOLAM

REACTIONS (2)
  - Pneumonitis [Recovered/Resolved]
  - Colitis [Recovered/Resolved]

NARRATIVE: CASE EVENT DATE: 20220614
